FAERS Safety Report 4732571-X (Version None)
Quarter: 2005Q3

REPORT INFORMATION
  Report Type: 
  Country: None (occurrence: None)
  Receive Date: 20050801
  Receipt Date: 20050801
  Transmission Date: 20060218
  Serious: Yes (Life-Threatening, Hospitalization, Disabling)
  Sender: FDA-Public Use
  Company Number: None

PATIENT
  Age: 34 Year
  Sex: Female
  Weight: 54.4316 kg

DRUGS (1)
  1. GONADOTROPIN -H  HUMAN MENOPAUSAL [Suspect]
     Indication: HIV INFECTION

REACTIONS (2)
  - HUMAN IMMUNODEFICIENCY VIRUS TRANSMISSION [None]
  - MATERNAL DRUGS AFFECTING FOETUS [None]
